FAERS Safety Report 21760643 (Version 3)
Quarter: 2023Q1

REPORT INFORMATION
  Report Type: Report from Study
  Country: ES (occurrence: None)
  Receive Date: 20221221
  Receipt Date: 20230131
  Transmission Date: 20230418
  Serious: Yes (Other)
  Sender: FDA-Public Use
  Company Number: ES-ROCHE-3242326

PATIENT
  Age: 75 Year
  Sex: Female
  Weight: 80.5 kg

DRUGS (21)
  1. GLOFITAMAB [Suspect]
     Active Substance: GLOFITAMAB
     Indication: Follicular lymphoma
     Dosage: ON 30/AUG/2022, FROM 9:45 AM TO 12:25 PM RECEIVED MOST RECENT DOSE OF STUDY DRUG PRIOR TO AE/SAE?DOS
     Route: 042
     Dates: start: 20211123
  2. OBINUTUZUMAB [Suspect]
     Active Substance: OBINUTUZUMAB
     Indication: Follicular lymphoma
     Dosage: DOSE LAST STUDY DRUG ADMIN PRIOR AE/SAE WAS 1000 MG?TOTAL VOLUME PRIOR AE/SAE WAS 100 ML?ON 16/NOV/2
     Route: 042
     Dates: start: 20211116
  3. POLATUZUMAB VEDOTIN [Suspect]
     Active Substance: POLATUZUMAB VEDOTIN
     Indication: Follicular lymphoma
     Dosage: DOSE LAST STUDY DRUG ADMIN PRIOR AE/SAE WAS 152 MG?ON 08/MAR/2022, MOST RECENT DOSE OF STUDY DRUG PR
     Route: 042
     Dates: start: 20211117
  4. PREDNISONE [Concomitant]
     Active Substance: PREDNISONE
     Indication: COVID-19
     Dates: start: 20220607
  5. UREA [Concomitant]
     Active Substance: UREA
     Indication: Inappropriate antidiuretic hormone secretion
     Dates: start: 20220829
  6. UREA [Concomitant]
     Active Substance: UREA
     Dates: start: 20211222
  7. SYMBICORT [Concomitant]
     Active Substance: BUDESONIDE\FORMOTEROL FUMARATE DIHYDRATE
     Indication: COVID-19
     Dosage: 160 MICROGRAMOS/4,5 MICROGRAMOS
     Dates: start: 20221003
  8. ACETYLCYSTEINE [Concomitant]
     Active Substance: ACETYLCYSTEINE
     Indication: COVID-19
     Dates: start: 20221003
  9. CEFDITOREN [Concomitant]
     Active Substance: CEFDITOREN
     Indication: Bronchitis
     Dates: start: 20220926
  10. CEFUROXIME [Concomitant]
     Active Substance: CEFUROXIME
     Indication: Urinary tract infection
     Dates: start: 20221116, end: 20221123
  11. NOLOTIL [Concomitant]
     Indication: Trigeminal neuralgia
     Dates: start: 20210508
  12. ALLOPURINOL [Concomitant]
     Active Substance: ALLOPURINOL
     Indication: Trigeminal neuralgia
     Dates: start: 20200519
  13. NEURONTIN [Concomitant]
     Active Substance: GABAPENTIN
     Indication: Trigeminal neuralgia
     Dates: start: 20200603
  14. TRILEPTAL [Concomitant]
     Active Substance: OXCARBAZEPINE
     Indication: Trigeminal neuralgia
     Dates: start: 20201215
  15. VIMPAT [Concomitant]
     Active Substance: LACOSAMIDE
     Indication: Trigeminal neuralgia
     Dates: start: 20201215
  16. VENTOLIN [Concomitant]
     Active Substance: ALBUTEROL SULFATE
     Indication: Sleep apnoea syndrome
     Dates: start: 20200205
  17. FLUTICASONE FUROATE\VILANTEROL TRIFENATATE [Concomitant]
     Active Substance: FLUTICASONE FUROATE\VILANTEROL TRIFENATATE
     Indication: Sleep apnoea syndrome
     Dates: start: 20210526
  18. OMEPRAZOLE [Concomitant]
     Active Substance: OMEPRAZOLE
     Dates: start: 20210430
  19. LACOSAMIDE [Concomitant]
     Active Substance: LACOSAMIDE
     Indication: Trigeminal neuralgia
     Dates: start: 20211126
  20. LORAZEPAM [Concomitant]
     Active Substance: LORAZEPAM
     Dates: start: 20211126
  21. ENALAPRIL [Concomitant]
     Active Substance: ENALAPRIL
     Dates: start: 20220307

REACTIONS (1)
  - Lung adenocarcinoma [Not Recovered/Not Resolved]

NARRATIVE: CASE EVENT DATE: 20221212
